FAERS Safety Report 9146202 (Version 2)
Quarter: 2013Q2

REPORT INFORMATION
  Report Type: Spontaneous
  Country: US (occurrence: None)
  Receive Date: 20130212
  Receipt Date: 20130514
  Transmission Date: 20140414
  Serious: Yes (Death)
  Sender: FDA-Public Use
  Company Number: JPI-P-029502

PATIENT
  Age: 78 Year
  Sex: Male

DRUGS (10)
  1. XYREM (500 MILLIGRAM/MILLILITERS, SOLUTION) (SODIUM OXYBATE) [Suspect]
     Indication: CATAPLEXY
     Route: 048
     Dates: start: 20050822
  2. HYDROCHLOROTHIAZIDE [Concomitant]
  3. FUROSEMIDE [Concomitant]
  4. ATORVASTATIN CALCIUM [Concomitant]
  5. MIDODRINE HCL [Concomitant]
  6. OMEPRAZOLE [Concomitant]
  7. MODAFINIL [Concomitant]
  8. FLUOXETIN HCL [Concomitant]
  9. METHYLPHENIDATE HYDROCHLORIDE [Concomitant]
  10. ALLOPURINOL [Concomitant]

REACTIONS (6)
  - Death [None]
  - Renal failure chronic [None]
  - Cardio-respiratory arrest [None]
  - Chronic hepatic failure [None]
  - Dry mouth [None]
  - Pharyngeal erythema [None]
